FAERS Safety Report 4694232-5 (Version None)
Quarter: 2005Q2

REPORT INFORMATION
  Report Type: 
  Country: None (occurrence: None)
  Receive Date: 20050617
  Receipt Date: 20050617
  Transmission Date: 20051028
  Serious: Yes (Death, Hospitalization)
  Sender: FDA-Public Use
  Company Number: None

PATIENT
  Sex: Female
  Weight: 63.9572 kg

DRUGS (8)
  1. INTERFERON ALPHA-2B (PEGALATED) [Suspect]
     Indication: RENAL CELL CARCINOMA STAGE UNSPECIFIED
     Dosage: 6.0 MICROGMM/KILOGRAM
  2. IRESSA [Suspect]
     Dosage: 250 MG PO Q DAY
     Route: 048
     Dates: start: 20050418, end: 20050419
  3. IREDIS [Concomitant]
  4. MEYESTROL [Concomitant]
  5. FOROSEMIDE [Concomitant]
  6. NADOLOL [Concomitant]
  7. AKKEGEA [Concomitant]
  8. TYLENOL [Concomitant]

REACTIONS (8)
  - BRONCHIAL OBSTRUCTION [None]
  - COLLAPSE OF LUNG [None]
  - DYSPNOEA [None]
  - HYPOTENSION [None]
  - LYMPHADENOPATHY [None]
  - METASTASES TO BONE [None]
  - METASTASES TO CHEST WALL [None]
  - METASTASES TO LUNG [None]
